FAERS Safety Report 9445950 (Version 2)
Quarter: 2013Q3

REPORT INFORMATION
  Report Type: Spontaneous
  Country: US (occurrence: US)
  Receive Date: 20130807
  Receipt Date: 20130828
  Transmission Date: 20140515
  Serious: Yes (Other)
  Sender: FDA-Public Use
  Company Number: US-FRI-1000047506

PATIENT
  Age: 58 Year
  Sex: Male
  Weight: 126 kg

DRUGS (20)
  1. LINZESS [Suspect]
     Indication: CONSTIPATION
     Dosage: 145 MCG
     Route: 048
     Dates: start: 20130426, end: 20130426
  2. B-12 [Concomitant]
     Dosage: 500 MG
  3. CARAFATE [Concomitant]
     Dosage: 4 GM
  4. FLAX SEED [Concomitant]
     Dosage: 1000 MG
  5. FOLIC ACID [Concomitant]
     Dosage: 1 MG
  6. HYDROCODONE [Concomitant]
     Dosage: 7.5-300 MG EVERY 4 TO 6 HOURS
  7. IRBESARTAN [Concomitant]
     Dosage: 300 MG
  8. LACTULOSE [Concomitant]
     Dosage: 20 MG
  9. LORATADINE [Concomitant]
     Dosage: 10 MG
  10. METFORMIN [Concomitant]
     Dosage: 500 MG
  11. METAMUCIL [Concomitant]
     Dosage: 1 TBSP TWICE DAILY
  12. OXYBUTYNIN [Concomitant]
     Dosage: 5 MG
  13. OMEGA 369 [Concomitant]
     Dosage: 1200 MG
  14. PREVACID [Concomitant]
     Dosage: 60 MG
  15. PROMETHAZINE [Concomitant]
     Dosage: 25 MG PRN
  16. SERTRALINE [Concomitant]
     Dosage: 50 MG
  17. SIMVASTATIN [Concomitant]
     Dosage: 10 MG
  18. TEMAZEPAM [Concomitant]
     Dosage: 30 MG
  19. VITAMIN D2 [Concomitant]
     Dosage: 0.0893 MG
  20. PANTOPRAZOLE [Concomitant]
     Dosage: 80 MG

REACTIONS (3)
  - Hypersensitivity [Recovered/Resolved]
  - Heart rate increased [Recovered/Resolved]
  - Blood glucose increased [Unknown]
